FAERS Safety Report 6834259-8 (Version None)
Quarter: 2010Q3

REPORT INFORMATION
  Report Type: 
  Country: None (occurrence: None)
  Receive Date: 20100712
  Receipt Date: 20070425
  Transmission Date: 20110219
  Serious: No
  Sender: FDA-Public Use
  Company Number: US-PFIZER INC-2007034539

PATIENT
  Sex: Female
  Weight: 39.01 kg

DRUGS (7)
  1. CHANTIX [Suspect]
     Indication: SMOKING CESSATION THERAPY
     Dates: start: 20070306, end: 20070301
  2. OXYCODONE HCL [Concomitant]
     Indication: PAIN
  3. CYMBALTA [Concomitant]
  4. TRAZODONE HYDROCHLORIDE [Concomitant]
     Indication: SOMNOLENCE
  5. KLONOPIN [Concomitant]
  6. PREMARIN [Concomitant]
  7. DARIFENACIN [Concomitant]
     Indication: URINARY INCONTINENCE

REACTIONS (2)
  - CONSTIPATION [None]
  - NAUSEA [None]
